FAERS Safety Report 14427792 (Version 2)
Quarter: 2020Q3

REPORT INFORMATION
  Report Type: Spontaneous
  Country: DK (occurrence: DK)
  Receive Date: 20180123
  Receipt Date: 20200702
  Transmission Date: 20201102
  Serious: Yes (Other)
  Sender: FDA-Public Use
  Company Number: PHHY2018DK007719

PATIENT
  Age: 87 Year
  Sex: Female

DRUGS (7)
  1. CORDAN (AMIODARONE HYDROCHLORIDE) [Suspect]
     Active Substance: AMIODARONE HYDROCHLORIDE
     Indication: ARRHYTHMIA
     Dosage: DOSIS: DOSERING EFTER SKRIFTLIG ANVISNING, STYRKE: 200 MG
     Route: 048
     Dates: start: 20170811, end: 20170926
  2. VAGIFEM [Concomitant]
     Active Substance: ESTRADIOL
     Indication: HORMONE THERAPY
     Dosage: 10 MG, UNK
     Route: 067
  3. XARELTO [Interacting]
     Active Substance: RIVAROXABAN
     Indication: ANTICOAGULANT THERAPY
     Dosage: STYRKE: 20 MG
     Route: 048
     Dates: start: 20170224, end: 201710
  4. PANTOPRAZOLE [Concomitant]
     Active Substance: PANTOPRAZOLE
     Indication: GASTROOESOPHAGEAL REFLUX DISEASE
     Dosage: STYRKE: 40 MG
     Route: 048
     Dates: start: 20170811
  5. METOPROLOL SUCCINATE. [Concomitant]
     Active Substance: METOPROLOL SUCCINATE
     Indication: ARRHYTHMIA
     Dosage: STYRKE: 50 MG
     Route: 048
     Dates: start: 20170227
  6. PAMOL [Concomitant]
     Active Substance: ACETAMINOPHEN
     Indication: PAIN
     Dosage: DOSIS: 2 TABLETTER EFTER BEHOV, HOJST 4 GANGE DAGLIGT, STYRKE: 500 MG
     Route: 048
     Dates: start: 20170811
  7. VAGIFEM [Concomitant]
     Active Substance: ESTRADIOL
     Dosage: DOSIS: 1 VAGITORIE I SKEDEN 2 GANGE UGENTLIGT, STYRKE: 10 MG
     Route: 067
     Dates: start: 20140220

REACTIONS (5)
  - Blood thyroid stimulating hormone increased [Recovered/Resolved]
  - International normalised ratio increased [Recovered/Resolved]
  - Glomerular filtration rate decreased [Recovered/Resolved]
  - Renal impairment [Recovered/Resolved]
  - Drug interaction [Recovered/Resolved]

NARRATIVE: CASE EVENT DATE: 2017
